FAERS Safety Report 4723783-X (Version None)
Quarter: 2005Q3

REPORT INFORMATION
  Report Type: 
  Country: None (occurrence: None)
  Receive Date: 20050725
  Receipt Date: 20050714
  Transmission Date: 20060218
  Serious: Yes (Hospitalization)
  Sender: FDA-Public Use
  Company Number: US-JNJFOC-20050703088

PATIENT
  Age: 9 Year
  Sex: Male

DRUGS (6)
  1. RISPERDAL [Suspect]
     Indication: AUTISM
     Route: 048
  2. RISPERDAL [Suspect]
     Indication: AGGRESSION
     Route: 048
  3. ADDERALL XR 15 [Concomitant]
     Route: 048
  4. ADDERALL XR 15 [Concomitant]
     Route: 048
  5. ADDERALL XR 15 [Concomitant]
     Route: 048
  6. ADDERALL XR 15 [Concomitant]
     Route: 048

REACTIONS (5)
  - LIVER FUNCTION TEST ABNORMAL [None]
  - OTITIS MEDIA [None]
  - PYREXIA [None]
  - SEDATION [None]
  - WHITE BLOOD CELL COUNT DECREASED [None]
